FAERS Safety Report 6497984-7 (Version None)
Quarter: 2009Q4

REPORT INFORMATION
  Report Type: 
  Country: None (occurrence: None)
  Receive Date: 20091215
  Receipt Date: 20091202
  Transmission Date: 20100525
  Serious: Yes (Other)
  Sender: FDA-Public Use
  Company Number: PHHY2009SK54422

PATIENT
  Age: 38 Year
  Sex: Female

DRUGS (1)
  1. INTERFERON BETA-1B [Suspect]
     Indication: MULTIPLE SCLEROSIS
     Dosage: 8 MIU, QOD
     Route: 058
     Dates: start: 20060901

REACTIONS (8)
  - CUTANEOUS VASCULITIS [None]
  - DRUG ERUPTION [None]
  - LYMPHOCYTE COUNT INCREASED [None]
  - LYMPHOCYTIC INFILTRATION [None]
  - PARAPARESIS [None]
  - PURPURA [None]
  - RASH PAPULAR [None]
  - SKIN LESION [None]
